FAERS Safety Report 5889712-0 (Version None)
Quarter: 2008Q3

REPORT INFORMATION
  Report Type: 
  Country: None (occurrence: None)
  Receive Date: 20080919
  Receipt Date: 20080908
  Transmission Date: 20090109
  Serious: Yes (Other)
  Sender: FDA-Public Use
  Company Number: DK-WYE-H05915408

PATIENT
  Age: 15 Month
  Sex: Female

DRUGS (2)
  1. GEMTUZUMAB OZOGAMICIN [Suspect]
     Indication: ACUTE MYELOID LEUKAEMIA
     Dosage: 5MG/M^2, TWO DOSES WITH A 3-WEEK INTERVAL
  2. GEMTUZUMAB OZOGAMICIN [Suspect]
     Dosage: 6MG/M^2, TWO DOSES WITH A 2-WEEK INTERVAL

REACTIONS (6)
  - BLOOD TEST ABNORMAL [None]
  - CONFUSIONAL STATE [None]
  - CONVULSION [None]
  - HYPERTENSION [None]
  - INFECTION [None]
  - INTRAVASCULAR HAEMOLYSIS [None]
